FAERS Safety Report 20217254 (Version 1)
Quarter: 2021Q4

REPORT INFORMATION
  Report Type: Spontaneous
  Country: RO (occurrence: RO)
  Receive Date: 20211222
  Receipt Date: 20211222
  Transmission Date: 20220303
  Serious: Yes (Death)
  Sender: FDA-Public Use
  Company Number: RO-NOVARTISPH-NVSC2021RO293107

PATIENT
  Age: 74 Year
  Sex: Male

DRUGS (1)
  1. RYDAPT [Suspect]
     Active Substance: MIDOSTAURIN
     Indication: Product used for unknown indication
     Dosage: UNK
     Route: 048
     Dates: start: 2021, end: 2021

REACTIONS (1)
  - COVID-19 [Fatal]
